FAERS Safety Report 8266336-1 (Version None)
Quarter: 2012Q2

REPORT INFORMATION
  Report Type: 
  Country: None (occurrence: None)
  Receive Date: 20120406
  Receipt Date: 20120403
  Transmission Date: 20120825
  Serious: Yes (Hospitalization)
  Sender: FDA-Public Use
  Company Number: CH-PFIZER INC-2012083847

PATIENT
  Age: 86 Year
  Sex: Female

DRUGS (6)
  1. PLAVIX [Suspect]
     Dosage: 75 MG, 1X/DAY
     Route: 048
     Dates: end: 20111129
  2. METOPROLOL SUCCINATE [Suspect]
     Indication: MYOCARDIAL ISCHAEMIA
     Dosage: 25 MG, 1X/DAY
     Route: 048
     Dates: end: 20111129
  3. ALDACTONE [Concomitant]
     Dosage: 12.5 MG, 1X/DAY
     Route: 048
  4. ATORVASTATIN CALCIUM [Suspect]
     Dosage: 40 MG, 1X/DAY
     Route: 048
     Dates: end: 20111129
  5. ASPIRIN [Suspect]
     Indication: MYOCARDIAL ISCHAEMIA
     Dosage: 100 MG, 1X/DAY
     Route: 048
     Dates: end: 20111129
  6. TORSEMIDE [Concomitant]
     Dosage: 10 MG, 1X/DAY
     Route: 048

REACTIONS (1)
  - THROMBOCYTOPENIC PURPURA [None]
